FAERS Safety Report 24913883 (Version 3)
Quarter: 2025Q2

REPORT INFORMATION
  Report Type: Spontaneous
  Country: US (occurrence: US)
  Receive Date: 20250202
  Receipt Date: 20250604
  Transmission Date: 20250716
  Serious: No
  Sender: SANOFI AVENTIS
  Company Number: US-SA-2025SA031123

PATIENT
  Age: 72 Year
  Sex: Male

DRUGS (12)
  1. DUPIXENT [Suspect]
     Active Substance: DUPILUMAB
     Indication: Eczema
     Route: 058
     Dates: start: 20241024, end: 20241024
  2. DUPIXENT [Suspect]
     Active Substance: DUPILUMAB
     Indication: Dermatitis atopic
     Dosage: 300 MG, QOW
     Route: 058
     Dates: start: 20241107
  3. JARDIANCE [Concomitant]
     Active Substance: EMPAGLIFLOZIN
  4. EZETIMIBE [Concomitant]
     Active Substance: EZETIMIBE
  5. RAMIPRIL [Concomitant]
     Active Substance: RAMIPRIL
  6. MONTELUKAST [Concomitant]
     Active Substance: MONTELUKAST
  7. ATORVASTATIN [Concomitant]
     Active Substance: ATORVASTATIN
  8. ASPIRIN [Concomitant]
     Active Substance: ASPIRIN
  9. ADVAIR HFA [Concomitant]
     Active Substance: FLUTICASONE PROPIONATE\SALMETEROL XINAFOATE
  10. AMLODIPINE [Concomitant]
     Active Substance: AMLODIPINE BESYLATE
  11. SILDENAFIL [Concomitant]
     Active Substance: SILDENAFIL
  12. METOPROLOL [Concomitant]
     Active Substance: METOPROLOL

REACTIONS (9)
  - Rhinorrhoea [Unknown]
  - Eye swelling [Recovering/Resolving]
  - Vision blurred [Recovered/Resolved]
  - Ocular hyperaemia [Recovering/Resolving]
  - Dry eye [Recovering/Resolving]
  - Eye pruritus [Recovering/Resolving]
  - Blepharitis [Recovering/Resolving]
  - Eye inflammation [Recovering/Resolving]
  - Eye irritation [Recovered/Resolved]

NARRATIVE: CASE EVENT DATE: 20240101
